FAERS Safety Report 16950183 (Version 13)
Quarter: 2021Q3

REPORT INFORMATION
  Report Type: Spontaneous
  Country: US (occurrence: US)
  Receive Date: 20191023
  Receipt Date: 20210906
  Transmission Date: 20211014
  Serious: Yes (Other)
  Sender: FDA-Public Use
  Company Number: US-PFIZER INC-2019459666

PATIENT
  Age: 55 Year
  Sex: Female

DRUGS (1)
  1. LYRICA [Suspect]
     Active Substance: PREGABALIN
     Indication: PAIN
     Dosage: UNK

REACTIONS (14)
  - Tooth malformation [Not Recovered/Not Resolved]
  - Jaw disorder [Unknown]
  - Crying [Unknown]
  - Thinking abnormal [Unknown]
  - Nasal disorder [Unknown]
  - Neoplasm malignant [Unknown]
  - Head injury [Not Recovered/Not Resolved]
  - Bipolar disorder [Unknown]
  - Pain [Not Recovered/Not Resolved]
  - Complication associated with device [Unknown]
  - Weight increased [Unknown]
  - Oral disorder [Unknown]
  - Stress [Unknown]
  - Memory impairment [Unknown]

NARRATIVE: CASE EVENT DATE: 2014
